FAERS Safety Report 7550037-9 (Version None)
Quarter: 2011Q2

REPORT INFORMATION
  Report Type: 
  Country: None (occurrence: None)
  Receive Date: 20110615
  Receipt Date: 20110606
  Transmission Date: 20111010
  Serious: No
  Sender: FDA-Public Use
  Company Number: US-PFIZER INC-2010112351

PATIENT
  Sex: Female
  Weight: 69.841 kg

DRUGS (3)
  1. XALATAN [Suspect]
     Indication: GLAUCOMA
     Dosage: 1 GTT IN EACH EYE, ONCE A DAY
     Route: 047
     Dates: start: 20090101
  2. LEVOTHYROXINE [Concomitant]
     Indication: HYPOTHYROIDISM
     Dosage: 50 MG, UNK
  3. ATENOLOL [Concomitant]
     Indication: HYPERTENSION
     Dosage: 12.5 MG, UNK

REACTIONS (6)
  - HAIR GROWTH ABNORMAL [None]
  - OROPHARYNGEAL PAIN [None]
  - SKIN DISCOLOURATION [None]
  - EYE DISCHARGE [None]
  - SENSATION OF FOREIGN BODY [None]
  - INFLUENZA LIKE ILLNESS [None]
